FAERS Safety Report 19493642 (Version 2)
Quarter: 2021Q3

REPORT INFORMATION
  Report Type: Spontaneous
  Country: US (occurrence: US)
  Receive Date: 20210705
  Receipt Date: 20210928
  Transmission Date: 20211014
  Serious: No
  Sender: FDA-Public Use
  Company Number: US-PFIZER INC-2021766287

PATIENT
  Age: 44 Year
  Sex: Female

DRUGS (3)
  1. IBRANCE [Suspect]
     Active Substance: PALBOCICLIB
     Dosage: 125 MG
     Dates: start: 20210501
  2. IBRANCE [Suspect]
     Active Substance: PALBOCICLIB
     Dosage: 125 MG, (TWO WEEKS OFF)
     Dates: start: 20210630
  3. IBRANCE [Suspect]
     Active Substance: PALBOCICLIB
     Dosage: 125 MG
     Dates: start: 20210421

REACTIONS (11)
  - Fatigue [Recovered/Resolved]
  - Stomatitis [Recovered/Resolved]
  - Nasal discomfort [Recovered/Resolved]
  - Hiccups [Unknown]
  - Hypoaesthesia oral [Unknown]
  - Anal haemorrhage [Unknown]
  - Oral disorder [Unknown]
  - White blood cell count decreased [Unknown]
  - Anal pruritus [Unknown]
  - Asthenia [Unknown]
  - Nausea [Recovered/Resolved]
